FAERS Safety Report 6109334-6 (Version None)
Quarter: 2009Q1

REPORT INFORMATION
  Report Type: 
  Country: None (occurrence: None)
  Receive Date: 20090306
  Receipt Date: 20090224
  Transmission Date: 20090719
  Serious: No
  Sender: FDA-Public Use
  Company Number: 2009-192235-NL

PATIENT
  Age: 33 Year
  Sex: Female

DRUGS (2)
  1. ETONGESTREL [Suspect]
     Indication: ENDOMETRIOSIS
     Dosage: DF SUBCUTANEOUS
     Route: 058
     Dates: start: 20071221, end: 20081015
  2. LEVONORGESTREL [Suspect]
     Indication: ENDOMETRIOSIS
     Dosage: DF INTRA_UTERINE
     Route: 015
     Dates: start: 20070501

REACTIONS (17)
  - ACNE [None]
  - ALOPECIA [None]
  - ASTHENIA [None]
  - DEPRESSION [None]
  - FATIGUE [None]
  - FLATULENCE [None]
  - GASTROINTESTINAL DISORDER [None]
  - HEADACHE [None]
  - HYPERTENSION [None]
  - HYPERTHERMIA [None]
  - IMPLANT SITE HAEMATOMA [None]
  - NAUSEA [None]
  - PAIN [None]
  - PALPITATIONS [None]
  - SCAR [None]
  - VERTIGO [None]
  - WEIGHT DECREASED [None]
